FAERS Safety Report 7258775-2 (Version None)
Quarter: 2011Q1

REPORT INFORMATION
  Report Type: 
  Country: None (occurrence: None)
  Receive Date: 20110129
  Receipt Date: 20100511
  Transmission Date: 20110831
  Serious: No
  Sender: FDA-Public Use
  Company Number: US-ABBOTT-10P-163-0645168-00

PATIENT
  Sex: Female
  Weight: 87.168 kg

DRUGS (6)
  1. MOBIC [Concomitant]
     Indication: SWELLING
     Dates: start: 20100501
  2. LOVASTATIN [Concomitant]
     Indication: C-REACTIVE PROTEIN INCREASED
  3. HUMIRA [Suspect]
     Indication: PSORIATIC ARTHROPATHY
     Dosage: APR 2010
     Route: 058
     Dates: start: 20080101, end: 20090101
  4. SYNTHROID [Concomitant]
     Indication: HYPOTHYROIDISM
  5. MOBIC [Concomitant]
     Indication: PAIN
  6. HUMIRA [Suspect]
     Dosage: APRIL 2010
     Route: 058
     Dates: start: 20080101, end: 20090901

REACTIONS (1)
  - PSORIATIC ARTHROPATHY [None]
